FAERS Safety Report 8508158-X (Version None)
Quarter: 2012Q3

REPORT INFORMATION
  Report Type: 
  Country: None (occurrence: None)
  Receive Date: 20120713
  Receipt Date: 20120703
  Transmission Date: 20120928
  Serious: Yes (Life-Threatening, Hospitalization)
  Sender: FDA-Public Use
  Company Number: US-SAVIENT-2012S1000057

PATIENT
  Age: 66 Year
  Sex: Male
  Weight: 73 kg

DRUGS (3)
  1. KRYSTEXXA [Suspect]
     Indication: GOUT
     Route: 042
     Dates: start: 20120221, end: 20120607
  2. OXYCODONE HCL [Concomitant]
     Indication: PRODUCT USED FOR UNKNOWN INDICATION
     Dates: start: 20110916
  3. COLCHICINE [Concomitant]
     Indication: PRODUCT USED FOR UNKNOWN INDICATION
     Dates: start: 20110916

REACTIONS (5)
  - VENTRICULAR TACHYCARDIA [None]
  - CARDIOMYOPATHY [None]
  - CEREBROVASCULAR ACCIDENT [None]
  - CARDIAC ARREST [None]
  - CARDIAC PROCEDURE COMPLICATION [None]
